FAERS Safety Report 9145510 (Version 1)
Quarter: 2013Q1

REPORT INFORMATION
  Report Type: Spontaneous
  Country: US (occurrence: None)
  Receive Date: 20130226
  Receipt Date: 20130226
  Transmission Date: 20140127
  Serious: Yes (Other)
  Sender: FDA-Public Use
  Company Number: None

PATIENT
  Age: 22 Year
  Sex: Female
  Weight: 81.65 kg

DRUGS (8)
  1. ESCITALOPRAM [Suspect]
     Indication: DEPRESSION
     Route: 048
     Dates: start: 20130124
  2. LOESTRIN 24 FE TABS (NORETHIN ACE-ETH ESTRAD-FE TABS) [Concomitant]
  3. LEXAPRO 20 MG TABS (ESCITALOPRAM OXALATE) [Concomitant]
  4. TRAZODONE HCL 50 MG TABS (TRAZODONE HCL) [Concomitant]
  5. ADDERALL XR 30 MG XR24H-CAP (AMPHETAMINE-DEXTROAMPHETAMINE) [Concomitant]
  6. ANUSOL-HC 25MG SUPP (HYDROCORTISONE ACETATE) [Concomitant]
  7. FLEXERIL 10MG TABS (CYCLOBENZAPRINE HCL) [Concomitant]
  8. NAPROSYN 375 MG TABS (NAPROXEN) [Concomitant]

REACTIONS (3)
  - Product substitution issue [None]
  - Mood altered [None]
  - Drug ineffective [None]
